FAERS Safety Report 4271675-5 (Version None)
Quarter: 2004Q1

REPORT INFORMATION
  Report Type: 
  Country: None (occurrence: None)
  Receive Date: 20040115
  Receipt Date: 20040114
  Transmission Date: 20041129
  Serious: Yes (Life-Threatening, Hospitalization)
  Sender: FDA-Public Use
  Company Number: DE-BRISTOL-MYERS SQUIBB COMPANY-12477600

PATIENT
  Age: 75 Year
  Sex: Male
  Weight: 78 kg

DRUGS (6)
  1. TAXOL [Suspect]
     Indication: NON-SMALL CELL LUNG CANCER
     Dosage: 1ST CYCLE - 02SEP03
     Route: 042
     Dates: start: 20030916, end: 20030916
  2. CARBOPLATIN [Suspect]
     Indication: NON-SMALL CELL LUNG CANCER
     Dosage: NOT GIVEN @ CYCLE 2+3
     Route: 042
     Dates: start: 20030902, end: 20030902
  3. RANITIDINE [Concomitant]
     Indication: PREMEDICATION
  4. CLEMASTINE [Concomitant]
     Indication: PREMEDICATION
  5. GRANISETRON [Concomitant]
     Indication: PREMEDICATION
  6. DEXAMETHASONE [Concomitant]
     Indication: PREMEDICATION

REACTIONS (5)
  - DISSEMINATED TUBERCULOSIS [None]
  - DYSPNOEA AT REST [None]
  - LUNG INFILTRATION [None]
  - ORAL CANDIDIASIS [None]
  - PLEURAL EFFUSION [None]
